FAERS Safety Report 9727750 (Version 1)
Quarter: 2013Q4

REPORT INFORMATION
  Report Type: Spontaneous
  Country: US (occurrence: US)
  Receive Date: 20131203
  Receipt Date: 20131203
  Transmission Date: 20140711
  Serious: No
  Sender: FDA-Public Use
  Company Number: US-ENDO PHARMACEUTICALS INC.-AMIT20120028

PATIENT
  Age: 45 Year
  Sex: Male
  Weight: 79.45 kg

DRUGS (1)
  1. AMITRIPTYLINE HCL 10MG [Suspect]
     Indication: NEURALGIA
     Route: 048
     Dates: start: 201211

REACTIONS (2)
  - Dysuria [Not Recovered/Not Resolved]
  - Urinary retention [Not Recovered/Not Resolved]
